FAERS Safety Report 9132125 (Version 1)
Quarter: 2013Q1

REPORT INFORMATION
  Report Type: Spontaneous
  Country: US (occurrence: US)
  Receive Date: 20130107
  Receipt Date: 20130107
  Transmission Date: 20140127
  Serious: No
  Sender: FDA-Public Use
  Company Number: US-BAUSCH-BL-2012-001606

PATIENT
  Age: 69 Year
  Sex: Female

DRUGS (9)
  1. ZIRGAN [Suspect]
     Indication: OPHTHALMIC HERPES SIMPLEX
     Dosage: 1 DROP IN RIGHT EYE, FIVE TIMES PER DAY
     Route: 047
     Dates: start: 20121016, end: 20121030
  2. IBUPROFEN [Concomitant]
  3. ERGOCALCIFEROL [Concomitant]
  4. ASCORBIC ACID [Concomitant]
  5. FEXOFENADINE HYDROCHLORIDE [Concomitant]
  6. LEVOTHYROXINE SODIUM [Concomitant]
  7. AMLODIPINE BESILATE [Concomitant]
  8. HYDROCHLOROTHIAZIDE [Concomitant]
  9. PREDNISOLONE [Concomitant]

REACTIONS (2)
  - Rash erythematous [Recovered/Resolved]
  - Lip swelling [Recovered/Resolved]
